FAERS Safety Report 5028575-2 (Version None)
Quarter: 2006Q2

REPORT INFORMATION
  Report Type: 
  Country: None (occurrence: None)
  Receive Date: 20060616
  Receipt Date: 20060616
  Transmission Date: 20061013
  Serious: Yes (Other)
  Sender: FDA-Public Use
  Company Number: None

PATIENT
  Age: 32 Year
  Sex: Female

DRUGS (1)
  1. VISINE-A [Suspect]
     Indication: MULTIPLE ALLERGIES
     Dosage: SEVERAL DROPS INTO BOTH EYES
     Dates: start: 20060614

REACTIONS (3)
  - APPLICATION SITE REACTION [None]
  - MYDRIASIS [None]
  - VISUAL DISTURBANCE [None]
